FAERS Safety Report 11813875 (Version 1)
Quarter: 2015Q4

REPORT INFORMATION
  Report Type: Spontaneous
  Country: US (occurrence: US)
  Receive Date: 20151209
  Receipt Date: 20151209
  Transmission Date: 20160305
  Serious: Yes (Disabling, Other)
  Sender: FDA-Public Use
  Company Number: US-MYLANLABS-2015M1044000

PATIENT

DRUGS (2)
  1. CIPROFLOXACIN. [Suspect]
     Active Substance: CIPROFLOXACIN
     Indication: DIARRHOEA INFECTIOUS
     Dosage: 500MG 2 TIMES A DAY FOR 10 DAYS
     Route: 065
  2. MOXIFLOXACIN. [Suspect]
     Active Substance: MOXIFLOXACIN
     Indication: OROPHARYNGEAL PAIN
     Dosage: 400MG DAILY FOR 3 DAYS
     Route: 065

REACTIONS (29)
  - Myalgia [Unknown]
  - Muscle contractions involuntary [Unknown]
  - Micturition urgency [Unknown]
  - Amnesia [Unknown]
  - Gastrooesophageal reflux disease [Unknown]
  - Sinus disorder [Unknown]
  - Disturbance in attention [Unknown]
  - Dry mouth [Unknown]
  - Ulcerative keratitis [Unknown]
  - Dyspnoea [Unknown]
  - Alopecia [Unknown]
  - Cognitive disorder [Unknown]
  - Impaired gastric emptying [Unknown]
  - Orthostatic hypotension [Unknown]
  - Muscular weakness [Unknown]
  - Fatigue [Unknown]
  - Dry eye [Unknown]
  - Polyneuropathy [Unknown]
  - Tendonitis [Unknown]
  - Seizure [Unknown]
  - Weight decreased [Unknown]
  - Multiple chemical sensitivity [Unknown]
  - Arthralgia [Unknown]
  - Insomnia [Unknown]
  - Irritable bowel syndrome [Unknown]
  - Migraine [Unknown]
  - Mydriasis [Unknown]
  - Mood swings [Unknown]
  - Postural orthostatic tachycardia syndrome [Unknown]
